FAERS Safety Report 8498136-1 (Version None)
Quarter: 2012Q3

REPORT INFORMATION
  Report Type: 
  Country: None (occurrence: None)
  Receive Date: 20120709
  Receipt Date: 20120605
  Transmission Date: 20120928
  Serious: No
  Sender: FDA-Public Use
  Company Number: US-AMGEN-USASP2010001395

PATIENT
  Age: 58 Year
  Sex: Male
  Weight: 102.4 kg

DRUGS (3)
  1. ENBREL [Suspect]
     Indication: PSORIASIS
     Dosage: 50 MG, 2 TIMES/WK
     Dates: start: 20080907
  2. ENBREL [Suspect]
     Dosage: UNK UNK, 2 TIMES/WK
     Route: 058
     Dates: start: 20101008, end: 20101020
  3. ENBREL [Suspect]
     Dosage: UNK
     Dates: start: 20101127

REACTIONS (7)
  - THYROID DISORDER [None]
  - FATIGUE [None]
  - INFLUENZA LIKE ILLNESS [None]
  - HYPERSOMNIA [None]
  - MYALGIA [None]
  - PSORIASIS [None]
  - PAIN [None]
